FAERS Safety Report 10170938 (Version 1)
Quarter: 2014Q2

REPORT INFORMATION
  Report Type: Spontaneous
  Country: US (occurrence: None)
  Receive Date: 20140513
  Receipt Date: 20140513
  Transmission Date: 20141212
  Serious: Yes (Disabling)
  Sender: FDA-Public Use
  Company Number: None

PATIENT
  Age: 60 Year
  Sex: Male
  Weight: 107.96 kg

DRUGS (5)
  1. GLIPIZIDE [Suspect]
     Indication: DIABETES MELLITUS
     Dosage: 1/2 A PIL TWICE A DAY BY MOUTH
     Route: 048
     Dates: start: 20130402, end: 20140412
  2. LISINOPRIL [Concomitant]
  3. GLARGINE INSULIN [Concomitant]
  4. SIMVASTATIN [Concomitant]
  5. VENLAFAXINE [Concomitant]

REACTIONS (2)
  - Arthralgia [None]
  - Muscle twitching [None]
